FAERS Safety Report 4960779-7 (Version None)
Quarter: 2006Q1

REPORT INFORMATION
  Report Type: 
  Country: None (occurrence: None)
  Receive Date: 20060331
  Receipt Date: 20060331
  Transmission Date: 20060701
  Serious: Yes (Hospitalization)
  Sender: FDA-Public Use
  Company Number: None

PATIENT
  Age: 64 Year
  Sex: Female
  Weight: 96.6162 kg

DRUGS (1)
  1. ACETAMINOPHEN  -ESTRA STRENGTH-   500MG     SAM'S WEST, INC. [Suspect]
     Indication: HEADACHE
     Dosage: TWO CAPLETS   ONE TIME   PO
     Route: 048
     Dates: start: 20060327, end: 20060327

REACTIONS (4)
  - BLOOD PRESSURE DECREASED [None]
  - DYSPNOEA [None]
  - LOSS OF CONSCIOUSNESS [None]
  - PRURITUS [None]
